FAERS Safety Report 4872035-6 (Version None)
Quarter: 2005Q4

REPORT INFORMATION
  Report Type: 
  Country: None (occurrence: None)
  Receive Date: 20051230
  Receipt Date: 20051220
  Transmission Date: 20060501
  Serious: Yes (Other)
  Sender: FDA-Public Use
  Company Number: 2005170314

PATIENT
  Age: 28 Year
  Sex: Female
  Weight: 65.7716 kg

DRUGS (2)
  1. BENYLIN [Suspect]
     Indication: INCREASED UPPER AIRWAY SECRETION
     Dosage: ABOUT HALF THE BOTTLE ONCE, ORAL
     Route: 048
     Dates: start: 20051220, end: 20051220
  2. IBUPROFEN [Concomitant]

REACTIONS (4)
  - DISORIENTATION [None]
  - FEELING DRUNK [None]
  - OVERDOSE [None]
  - VOMITING [None]
